FAERS Safety Report 23510411 (Version 1)
Quarter: 2024Q1

REPORT INFORMATION
  Report Type: Other
  Country: US (occurrence: None)
  Receive Date: 20240211
  Receipt Date: 20240211
  Transmission Date: 20240410
  Serious: Yes (Other)
  Sender: FDA-Public Use
  Company Number: US-ROCHE-3502777

PATIENT

DRUGS (3)
  1. ATEZOLIZUMAB [Suspect]
     Active Substance: ATEZOLIZUMAB
     Indication: Non-small cell lung cancer
     Route: 065
  2. PEMBROLIZUMAB [Suspect]
     Active Substance: PEMBROLIZUMAB
     Indication: Non-small cell lung cancer
     Route: 065
  3. NIVOLUMAB [Suspect]
     Active Substance: NIVOLUMAB
     Indication: Non-small cell lung cancer
     Route: 065

REACTIONS (11)
  - Acute kidney injury [Unknown]
  - Cardiomyopathy [Unknown]
  - Pneumonitis [Unknown]
  - Arrhythmia [Unknown]
  - Hypothyroidism [Unknown]
  - Colitis [Unknown]
  - Hepatitis [Unknown]
  - Type 1 diabetes mellitus [Unknown]
  - Adrenal insufficiency [Unknown]
  - Myocarditis [Unknown]
  - Hypophysitis [Unknown]
